FAERS Safety Report 22191324 (Version 2)
Quarter: 2023Q2

REPORT INFORMATION
  Report Type: Spontaneous
  Country: US (occurrence: US)
  Receive Date: 20230410
  Receipt Date: 20230413
  Transmission Date: 20230722
  Serious: Yes (Death, Other)
  Sender: FDA-Public Use
  Company Number: US-AMGEN-USASP2023057410

PATIENT

DRUGS (10)
  1. BEVACIZUMAB [Suspect]
     Active Substance: BEVACIZUMAB
     Indication: Colorectal cancer
     Dosage: UNK
     Route: 065
  2. BEVACIZUMAB [Suspect]
     Active Substance: BEVACIZUMAB
     Indication: Adenocarcinoma of appendix
  3. FLUOROURACIL\LEUCOVORIN CALCIUM\OXALIPLATIN [Concomitant]
     Active Substance: FLUOROURACIL\LEUCOVORIN CALCIUM\OXALIPLATIN
     Indication: Colorectal cancer
     Dosage: UNK
  4. FLUOROURACIL\LEUCOVORIN CALCIUM\OXALIPLATIN [Concomitant]
     Active Substance: FLUOROURACIL\LEUCOVORIN CALCIUM\OXALIPLATIN
     Indication: Adenocarcinoma of appendix
  5. FLUOROURACIL\IRINOTECAN\LEUCOVORIN [Concomitant]
     Active Substance: FLUOROURACIL\IRINOTECAN\LEUCOVORIN
     Indication: Colorectal cancer
     Dosage: UNK
  6. FLUOROURACIL\IRINOTECAN\LEUCOVORIN [Concomitant]
     Active Substance: FLUOROURACIL\IRINOTECAN\LEUCOVORIN
     Indication: Adenocarcinoma of appendix
  7. FLUOROURACIL\IRINOTECAN\LEUCOVORIN\OXALIPLATIN [Concomitant]
     Active Substance: FLUOROURACIL\IRINOTECAN\LEUCOVORIN\OXALIPLATIN
     Indication: Adenocarcinoma of appendix
     Dosage: UNK
  8. CETUXIMAB [Concomitant]
     Active Substance: CETUXIMAB
     Indication: Adenocarcinoma of appendix
     Dosage: UNK
  9. CETUXIMAB [Concomitant]
     Active Substance: CETUXIMAB
     Indication: Colorectal cancer
  10. CAPECITABINE\OXALIPLATIN [Concomitant]
     Active Substance: CAPECITABINE\OXALIPLATIN
     Indication: Colorectal cancer
     Dosage: UNK

REACTIONS (4)
  - Death [Fatal]
  - Adenocarcinoma of appendix [Unknown]
  - Colorectal cancer metastatic [Unknown]
  - Off label use [Unknown]
